FAERS Safety Report 7772657-9 (Version None)
Quarter: 2011Q3

REPORT INFORMATION
  Report Type: 
  Country: None (occurrence: None)
  Receive Date: 20110922
  Receipt Date: 20110524
  Transmission Date: 20111222
  Serious: Yes (Hospitalization)
  Sender: FDA-Public Use
  Company Number: US-ASTRAZENECA-2011SE31991

PATIENT
  Age: 45 Year
  Sex: Male

DRUGS (6)
  1. SEROQUEL [Suspect]
     Route: 048
  2. LITHIUM [Concomitant]
  3. SEROQUEL [Suspect]
     Indication: BIPOLAR DISORDER
     Route: 048
  4. TRAZODONE HCL [Concomitant]
  5. SEROQUEL [Suspect]
     Route: 048
  6. VALIUM [Concomitant]

REACTIONS (1)
  - MANIA [None]
